FAERS Safety Report 11196682 (Version 1)
Quarter: 2015Q2

REPORT INFORMATION
  Report Type: Spontaneous
  Country: IL (occurrence: IL)
  Receive Date: 20150617
  Receipt Date: 20150617
  Transmission Date: 20150821
  Serious: Yes (Death, Hospitalization)
  Sender: FDA-Public Use
  Company Number: IL-SA-2015SA084133

PATIENT
  Age: 80 Year
  Sex: Male

DRUGS (8)
  1. OXALIPLATIN. [Suspect]
     Active Substance: OXALIPLATIN
     Indication: RECTAL ADENOCARCINOMA
     Route: 065
  2. BEVACIZUMAB [Suspect]
     Active Substance: BEVACIZUMAB
     Indication: RECTAL ADENOCARCINOMA
     Dosage: AS FOLFORI REGIMEN
     Route: 065
     Dates: start: 2006
  3. FLUOROURACIL. [Suspect]
     Active Substance: FLUOROURACIL
     Indication: RECTAL ADENOCARCINOMA
     Dosage: AS FOLFORI REGIMEN
     Route: 065
     Dates: start: 2006
  4. BEVACIZUMAB [Suspect]
     Active Substance: BEVACIZUMAB
     Indication: RECTAL ADENOCARCINOMA
     Dosage: AS FOLFOX REGIMEN
     Route: 065
  5. IRINOTECAN [Suspect]
     Active Substance: IRINOTECAN
     Indication: RECTAL ADENOCARCINOMA
     Dosage: AS FOLFORI REGIMEN
     Route: 065
     Dates: start: 2006
  6. OXALIPLATIN. [Suspect]
     Active Substance: OXALIPLATIN
     Indication: RECTAL ADENOCARCINOMA
     Route: 065
  7. FLUOROURACIL. [Suspect]
     Active Substance: FLUOROURACIL
     Indication: RECTAL ADENOCARCINOMA
     Route: 065
     Dates: start: 200509
  8. FLUOROURACIL. [Suspect]
     Active Substance: FLUOROURACIL
     Indication: RECTAL ADENOCARCINOMA
     Dosage: AS FOLFOX REGIMEN
     Route: 065

REACTIONS (9)
  - Pneumonitis [Fatal]
  - Cough [Fatal]
  - Lung infiltration [Fatal]
  - Respiratory acidosis [Fatal]
  - Diffuse alveolar damage [Fatal]
  - Dyspnoea [Fatal]
  - Pyrexia [Fatal]
  - Respiratory failure [Fatal]
  - Diarrhoea [Unknown]
